FAERS Safety Report 9826524 (Version 2)
Quarter: 2014Q1

REPORT INFORMATION
  Report Type: Spontaneous
  Country: US (occurrence: US)
  Receive Date: 20140117
  Receipt Date: 20140331
  Transmission Date: 20141002
  Serious: No
  Sender: FDA-Public Use
  Company Number: US-BIOGENIDEC-2014BI002220

PATIENT
  Age: 60 Year
  Sex: Female

DRUGS (13)
  1. TECFIDERA [Suspect]
     Indication: MULTIPLE SCLEROSIS
  2. TECFIDERA [Suspect]
     Indication: MULTIPLE SCLEROSIS
     Route: 048
  3. REQUIP XL [Concomitant]
  4. LYRICA [Concomitant]
  5. TIZANADINE [Concomitant]
  6. FENTANYL [Concomitant]
  7. BACLOFEN [Concomitant]
  8. LEXAPRO [Concomitant]
  9. FISH OIL [Concomitant]
  10. VITAMIN D [Concomitant]
  11. PROVIGIL [Concomitant]
  12. OMEGA 3 [Concomitant]
  13. OMEGA 3 [Concomitant]

REACTIONS (7)
  - Fatigue [Not Recovered/Not Resolved]
  - Urticaria [Not Recovered/Not Resolved]
  - Flushing [Not Recovered/Not Resolved]
  - Feeling hot [Not Recovered/Not Resolved]
  - Burning sensation [Not Recovered/Not Resolved]
  - Erythema [Unknown]
  - Diarrhoea [Unknown]
